FAERS Safety Report 4587031-6 (Version None)
Quarter: 2005Q1

REPORT INFORMATION
  Report Type: 
  Country: None (occurrence: None)
  Receive Date: 20050218
  Receipt Date: 19930302
  Transmission Date: 20050727
  Serious: Yes (Other)
  Sender: FDA-Public Use
  Company Number: M031076

PATIENT
  Age: 72 Year
  Sex: Male

DRUGS (1)
  1. HYDREA [Suspect]
     Indication: CHRONIC MYELOID LEUKAEMIA
     Route: 048
     Dates: start: 19800501

REACTIONS (1)
  - VASCULITIS [None]
